FAERS Safety Report 6484259-5 (Version None)
Quarter: 2009Q4

REPORT INFORMATION
  Report Type: 
  Country: None (occurrence: None)
  Receive Date: 20091209
  Receipt Date: 20091208
  Transmission Date: 20100525
  Serious: Yes (Disabling)
  Sender: FDA-Public Use
  Company Number: D0065131A

PATIENT
  Sex: Female
  Weight: 55 kg

DRUGS (1)
  1. AUGMENTIN '125' [Suspect]
     Indication: URINARY TRACT INFECTION
     Dosage: 1000MG TWICE PER DAY
     Route: 048

REACTIONS (9)
  - ABDOMINAL PAIN UPPER [None]
  - DIARRHOEA [None]
  - DYSGEUSIA [None]
  - GASTROINTESTINAL DISORDER [None]
  - GLOSSODYNIA [None]
  - NAUSEA [None]
  - STOMATITIS [None]
  - TONGUE BLISTERING [None]
  - VOMITING [None]
